FAERS Safety Report 18211899 (Version 1)
Quarter: 2020Q3

REPORT INFORMATION
  Report Type: Spontaneous
  Country: US (occurrence: US)
  Receive Date: 20200827
  Receipt Date: 20200827
  Transmission Date: 20201103
  Serious: No
  Sender: FDA-Public Use
  Company Number: None

PATIENT

DRUGS (2)
  1. TETRACYCLINE HCL [Suspect]
     Active Substance: TETRACYCLINE HYDROCHLORIDE
  2. TETRACAINE HYDROCHLORIDE. [Suspect]
     Active Substance: TETRACAINE HYDROCHLORIDE

REACTIONS (2)
  - Product name confusion [None]
  - Product storage error [None]
